FAERS Safety Report 11167250 (Version 1)
Quarter: 2015Q2

REPORT INFORMATION
  Report Type: Spontaneous
  Country: US (occurrence: None)
  Receive Date: 20150603
  Receipt Date: 20150603
  Transmission Date: 20150821
  Serious: Yes (Death, Life-Threatening, Disabling, Other)
  Sender: FDA-Public Use
  Company Number: DEP_02716_2015

PATIENT
  Age: 44 Year
  Sex: Male

DRUGS (9)
  1. SKELAXIN [Concomitant]
     Active Substance: METAXALONE
  2. PAMELOR [Concomitant]
     Active Substance: NORTRIPTYLINE HYDROCHLORIDE
  3. ROBAXIN [Concomitant]
     Active Substance: METHOCARBAMOL
  4. CYCLOBENZAPRINE [Concomitant]
     Active Substance: CYCLOBENZAPRINE
  5. LYRICA [Concomitant]
     Active Substance: PREGABALIN
  6. NUCYNTA ER [Suspect]
     Active Substance: TAPENTADOL HYDROCHLORIDE
     Indication: PRODUCT USED FOR UNKNOWN INDICATION
     Route: 048
  7. NUCYNTA [Suspect]
     Active Substance: TAPENTADOL HYDROCHLORIDE
     Indication: BREAKTHROUGH PAIN
     Route: 048
     Dates: start: 20140527
  8. ETODOLAC. [Concomitant]
     Active Substance: ETODOLAC
  9. ZORVOLEX [Concomitant]
     Active Substance: DICLOFENAC

REACTIONS (1)
  - Product quality issue [None]

NARRATIVE: CASE EVENT DATE: 20150217
